FAERS Safety Report 7727546-2 (Version None)
Quarter: 2011Q3

REPORT INFORMATION
  Report Type: 
  Country: None (occurrence: None)
  Receive Date: 20110902
  Receipt Date: 20110822
  Transmission Date: 20111222
  Serious: Yes (Death)
  Sender: FDA-Public Use
  Company Number: US-BAYER-2011-021582

PATIENT
  Sex: Male

DRUGS (9)
  1. OMNISCAN [Suspect]
     Indication: IMAGING PROCEDURE
     Dosage: UNK
     Dates: start: 20031114, end: 20031114
  2. OMNISCAN [Suspect]
     Indication: NUCLEAR MAGNETIC RESONANCE IMAGING
  3. GADOLINIUM IN UNSPECIFIED DRUG [Suspect]
     Dosage: UNK
     Dates: start: 20050617, end: 20050617
  4. GADOLINIUM IN UNSPECIFIED DRUG [Suspect]
     Indication: ENDOSCOPIC RETROGRADE CHOLANGIOPANCREATOGRAPHY
  5. GADOLINIUM IN UNSPECIFIED DRUG [Suspect]
     Indication: ARTERIOGRAM CORONARY
     Dosage: UNK
     Dates: start: 19960510, end: 19960510
  6. OPTIMARK [Suspect]
     Indication: IMAGING PROCEDURE
  7. MAGNEVIST [Suspect]
     Indication: IMAGING PROCEDURE
  8. GADOLINIUM IN UNSPECIFIED DRUG [Suspect]
     Indication: NUCLEAR MAGNETIC RESONANCE IMAGING
     Dosage: UNK
     Dates: start: 20050623, end: 20050623
  9. GADOLINIUM IN UNSPECIFIED DRUG [Suspect]
     Dosage: UNK
     Dates: start: 20050628, end: 20050628

REACTIONS (8)
  - EMOTIONAL DISTRESS [None]
  - JOINT CONTRACTURE [None]
  - ANHEDONIA [None]
  - SWELLING [None]
  - SKIN HYPERTROPHY [None]
  - NEPHROGENIC SYSTEMIC FIBROSIS [None]
  - ARTHRALGIA [None]
  - SKIN EXFOLIATION [None]
